FAERS Safety Report 14548031 (Version 3)
Quarter: 2018Q1

REPORT INFORMATION
  Report Type: Spontaneous
  Country: JP (occurrence: JP)
  Receive Date: 20180219
  Receipt Date: 20180309
  Transmission Date: 20180509
  Serious: Yes (Death, Hospitalization, Other)
  Sender: FDA-Public Use
  Company Number: JP-TEVA-2018-JP-843460

PATIENT
  Age: 85 Year
  Sex: Female

DRUGS (12)
  1. FEBUXOSTAT. [Concomitant]
     Active Substance: FEBUXOSTAT
     Indication: PROPHYLAXIS
     Route: 065
     Dates: start: 20171207, end: 20180105
  2. MAGNESIUM OXIDE. [Concomitant]
     Active Substance: MAGNESIUM OXIDE
     Indication: PRODUCT USED FOR UNKNOWN INDICATION
     Route: 048
     Dates: start: 20171024, end: 20180105
  3. BENDAMUSTINE HYDROCHLORIDE. [Suspect]
     Active Substance: BENDAMUSTINE HYDROCHLORIDE
     Indication: B-CELL LYMPHOMA
     Route: 042
     Dates: start: 20171222, end: 20171223
  4. SULFAMETHOXAZOLE W/TRIMETHOPRIM [Suspect]
     Active Substance: SULFAMETHOXAZOLE\TRIMETHOPRIM
     Route: 065
     Dates: start: 20171227
  5. RABEPRAZOLE [Concomitant]
     Active Substance: RABEPRAZOLE
     Indication: GASTRITIS PROPHYLAXIS
     Route: 048
     Dates: start: 20171208, end: 20180105
  6. RITUXIMAB. [Suspect]
     Active Substance: RITUXIMAB
     Indication: B-CELL LYMPHOMA
     Route: 042
     Dates: start: 20171221
  7. BAKTAR [Suspect]
     Active Substance: SULFAMETHOXAZOLE\TRIMETHOPRIM
     Indication: PRODUCT USED FOR UNKNOWN INDICATION
     Route: 065
  8. BIFIDOBACTERIUM ANIMALIS [Concomitant]
     Indication: DIARRHOEA
     Route: 048
     Dates: start: 20171227, end: 20171227
  9. SULFAMETHOXAZOLE W/TRIMETHOPRIM [Suspect]
     Active Substance: SULFAMETHOXAZOLE\TRIMETHOPRIM
     Indication: PRODUCT USED FOR UNKNOWN INDICATION
     Route: 065
     Dates: end: 201712
  10. VALACICLOVIR [Suspect]
     Active Substance: VALACYCLOVIR HYDROCHLORIDE
     Indication: PROPHYLAXIS
     Route: 048
     Dates: start: 20171221, end: 20180105
  11. ROSUVASTATIN CALCIUM. [Concomitant]
     Active Substance: ROSUVASTATIN CALCIUM
     Indication: PRODUCT USED FOR UNKNOWN INDICATION
     Route: 048
     Dates: start: 20171024, end: 20171024
  12. CILNIDIPINE [Concomitant]
     Active Substance: CILNIDIPINE
     Indication: PRODUCT USED FOR UNKNOWN INDICATION
     Route: 048
     Dates: start: 20171024, end: 20180105

REACTIONS (21)
  - Respiratory distress [Unknown]
  - Dehydration [Recovering/Resolving]
  - Renal impairment [Unknown]
  - Malaise [Unknown]
  - Pneumonia [Fatal]
  - Renal disorder [Unknown]
  - Decreased appetite [Unknown]
  - Pleural effusion [Fatal]
  - Pneumocystis jirovecii pneumonia [Fatal]
  - Oliguria [Unknown]
  - Dry mouth [Unknown]
  - Blood pressure decreased [Unknown]
  - Hypoalbuminaemia [Fatal]
  - Cardiac failure [Unknown]
  - Staphylococcal sepsis [Fatal]
  - Heart rate increased [Unknown]
  - Cytomegalovirus infection [Fatal]
  - Clostridium difficile colitis [Fatal]
  - Stevens-Johnson syndrome [Unknown]
  - Infection [Fatal]
  - Diarrhoea [Unknown]

NARRATIVE: CASE EVENT DATE: 201801
